FAERS Safety Report 9933203 (Version 1)
Quarter: 2014Q1

REPORT INFORMATION
  Report Type: Spontaneous
  Country: US (occurrence: US)
  Receive Date: 20140228
  Receipt Date: 20140228
  Transmission Date: 20141002
  Serious: No
  Sender: FDA-Public Use
  Company Number: US-GLAXOSMITHKLINE-A1054914A

PATIENT
  Age: 33 Year
  Sex: Female

DRUGS (4)
  1. LAMICTAL [Suspect]
     Indication: BIPOLAR DISORDER
     Dosage: 450MG AT NIGHT
     Route: 048
  2. LAMOTRIGINE [Suspect]
     Indication: BIPOLAR DISORDER
     Dosage: 350MG AT NIGHT
     Route: 048
     Dates: start: 200601
  3. CYMBALTA [Concomitant]
  4. VALIUM [Concomitant]

REACTIONS (3)
  - Mania [Unknown]
  - Drug screen positive [Unknown]
  - Drug screen positive [Unknown]
